FAERS Safety Report 7365659-8 (Version None)
Quarter: 2011Q1

REPORT INFORMATION
  Report Type: 
  Country: None (occurrence: None)
  Receive Date: 20110322
  Receipt Date: 20110121
  Transmission Date: 20110831
  Serious: Yes (Other)
  Sender: FDA-Public Use
  Company Number: US-BAYER-2011-022879

PATIENT
  Sex: Female
  Weight: 59.864 kg

DRUGS (5)
  1. UNKNOWN [Concomitant]
     Dosage: UNK
     Dates: start: 20060101
  2. UNKNOWN [Concomitant]
     Dosage: UNK
     Dates: start: 20060528, end: 20060501
  3. YAZ [Suspect]
     Indication: CONTRACEPTION
     Dosage: 1 DF, QD
     Dates: start: 20060401
  4. YASMIN [Suspect]
     Indication: CONTRACEPTION
     Dosage: 1 DF, QD
     Dates: start: 20010101, end: 20060101
  5. ADVIL LIQUI-GELS [Concomitant]
     Dosage: UNK UNK, PRN

REACTIONS (4)
  - CHOLELITHIASIS [None]
  - NAUSEA [None]
  - VOMITING [None]
  - CHOLECYSTECTOMY [None]
